FAERS Safety Report 5428924-7 (Version None)
Quarter: 2007Q3

REPORT INFORMATION
  Report Type: 
  Country: None (occurrence: None)
  Receive Date: 20070829
  Receipt Date: 20070822
  Transmission Date: 20080115
  Serious: Yes (Hospitalization)
  Sender: FDA-Public Use
  Company Number: FR-JNJFOC-20070604522

PATIENT
  Sex: Female
  Weight: 75 kg

DRUGS (10)
  1. REMINYL [Suspect]
     Route: 048
  2. REMINYL [Suspect]
     Indication: DRUG USE FOR UNKNOWN INDICATION
     Route: 048
  3. ALLOPURINOL [Concomitant]
  4. PRAVASTATIN [Concomitant]
  5. PLAVIX [Concomitant]
  6. PRETERAX [Concomitant]
  7. PERINDOPRIL ERBUMINE [Concomitant]
  8. CIPRALAN [Concomitant]
  9. DIAMICRON [Concomitant]
  10. DIASTABOL [Concomitant]

REACTIONS (3)
  - ARRHYTHMIA [None]
  - BRADYCARDIA [None]
  - FATIGUE [None]
